FAERS Safety Report 8539758-9 (Version None)
Quarter: 2012Q3

REPORT INFORMATION
  Report Type: 
  Country: None (occurrence: None)
  Receive Date: 20120726
  Receipt Date: 20120718
  Transmission Date: 20120928
  Serious: Yes (Death)
  Sender: FDA-Public Use
  Company Number: GB-JNJFOC-20120607607

PATIENT
  Age: 43 Year
  Sex: Female
  Weight: 63 kg

DRUGS (7)
  1. MIRTAZAPINE [Concomitant]
     Indication: DEPRESSION
     Route: 048
     Dates: end: 20120106
  2. RISPERDAL CONSTA [Suspect]
     Indication: SCHIZOPHRENIA
     Route: 030
     Dates: end: 20120104
  3. XENICAL [Concomitant]
     Indication: OBESITY
     Route: 048
     Dates: end: 20120106
  4. MEBEVERINE [Concomitant]
     Route: 065
  5. RISPERIDONE [Suspect]
     Indication: SCHIZOPHRENIA
     Route: 048
     Dates: start: 20120105
  6. DILTIAZEM HCL [Concomitant]
     Indication: ANAL FISSURE
     Route: 065
     Dates: end: 20120106
  7. ACETAMINOPHEN AND CODEINE PHOSPHATE [Concomitant]
     Route: 065

REACTIONS (2)
  - SCHIZOPHRENIA [None]
  - SUDDEN DEATH [None]
